FAERS Safety Report 9437112 (Version 1)
Quarter: 2013Q3

REPORT INFORMATION
  Report Type: Spontaneous
  Country: FR (occurrence: FR)
  Receive Date: 20130802
  Receipt Date: 20130802
  Transmission Date: 20140515
  Serious: Yes (Other)
  Sender: FDA-Public Use
  Company Number: FR-JNJFOC-20130715007

PATIENT
  Age: 0 Day
  Sex: 0

DRUGS (10)
  1. PREZISTA [Suspect]
     Indication: PRODUCT USED FOR UNKNOWN INDICATION
     Dosage: MOTHERS DOSAGE
     Route: 064
  2. FLAGYL [Suspect]
     Indication: PRODUCT USED FOR UNKNOWN INDICATION
     Dosage: MOTHERS DOSAGE
     Route: 064
     Dates: start: 20130512, end: 20130520
  3. NORVIR [Suspect]
     Indication: PRODUCT USED FOR UNKNOWN INDICATION
     Dosage: MOTHERS DOSAGE
     Route: 064
     Dates: end: 20130520
  4. RETROVIR [Suspect]
     Indication: PRODUCT USED FOR UNKNOWN INDICATION
     Dosage: 220MG/20ML??MOTHERS DOSAGE
     Route: 064
     Dates: start: 20130520, end: 20130520
  5. SUFENTANIL [Suspect]
     Indication: PRODUCT USED FOR UNKNOWN INDICATION
     Dosage: 5MCG/ML??MOTHERS DOSAGE
     Route: 064
     Dates: start: 20130520, end: 20130520
  6. BUPIVACAINE [Suspect]
     Indication: PRODUCT USED FOR UNKNOWN INDICATION
     Dosage: INTRA-SPINAL WAY, VIA TRANSPLACENTAL ROUTE 20MG/4MLMOTHERS DOSAGE
     Route: 064
     Dates: start: 20130520, end: 20130520
  7. MORPHINE [Suspect]
     Indication: PRODUCT USED FOR UNKNOWN INDICATION
     Dosage: MOTHERS DOSAGE
     Route: 064
     Dates: start: 20130520, end: 20130520
  8. SUFENTANIL [Suspect]
     Indication: PRODUCT USED FOR UNKNOWN INDICATION
     Dosage: 5MCG/ML??MOTHERS DOSAGE
     Route: 064
     Dates: start: 20130520, end: 20130520
  9. DELURSAN [Concomitant]
     Indication: CHOLESTASIS OF PREGNANCY
     Dosage: MOTHERS DOSAGE
     Route: 064
     Dates: start: 20130412, end: 20130512
  10. ISENTRESS [Concomitant]
     Indication: PRODUCT USED FOR UNKNOWN INDICATION
     Dosage: MOTHERS DOSAGE
     Route: 064
     Dates: end: 20130507

REACTIONS (3)
  - Hypotension [Unknown]
  - Premature baby [Unknown]
  - Foetal exposure during pregnancy [Recovered/Resolved]
